FAERS Safety Report 12450386 (Version 1)
Quarter: 2016Q2

REPORT INFORMATION
  Report Type: Spontaneous
  Country: IT (occurrence: IT)
  Receive Date: 20160609
  Receipt Date: 20160609
  Transmission Date: 20160815
  Serious: Yes (Other)
  Sender: FDA-Public Use
  Company Number: IT-JNJFOC-20160600598

PATIENT
  Sex: Male

DRUGS (1)
  1. ABIRATERONE [Suspect]
     Active Substance: ABIRATERONE
     Indication: PROSTATE CANCER METASTATIC
     Dosage: INITIATED TREATMENT BETWEEN NOV-2013 AND FEB-2016
     Route: 048

REACTIONS (2)
  - Hepatotoxicity [Unknown]
  - Cardiotoxicity [Unknown]
